FAERS Safety Report 4398462-1 (Version None)
Quarter: 2004Q3

REPORT INFORMATION
  Report Type: 
  Country: None (occurrence: None)
  Receive Date: 20040715
  Receipt Date: 20040624
  Transmission Date: 20050211
  Serious: Yes (Hospitalization)
  Sender: FDA-Public Use
  Company Number: US-ROCHE-372372

PATIENT
  Age: 63 Year
  Sex: Male
  Weight: 72.6 kg

DRUGS (3)
  1. XELODA [Suspect]
     Indication: RECTAL CANCER
     Route: 048
     Dates: start: 20040525, end: 20040608
  2. AVASTIN [Concomitant]
     Indication: RECTAL CANCER
     Route: 042
     Dates: start: 20040525, end: 20040608
  3. OXALIPLATIN [Concomitant]
     Indication: RECTAL CANCER
     Route: 065
     Dates: start: 20040525, end: 20040525

REACTIONS (19)
  - ABDOMINAL PAIN [None]
  - BLOOD ALBUMIN DECREASED [None]
  - BLOOD ALKALINE PHOSPHATASE INCREASED [None]
  - BLOOD CALCIUM DECREASED [None]
  - BLOOD CHLORIDE INCREASED [None]
  - BLOOD GLUCOSE INCREASED [None]
  - BLOOD MAGNESIUM DECREASED [None]
  - BLOOD SODIUM DECREASED [None]
  - BLOOD UREA DECREASED [None]
  - C-REACTIVE PROTEIN INCREASED [None]
  - DIARRHOEA [None]
  - HAEMOGLOBIN DECREASED [None]
  - HYPOTENSION [None]
  - LUNG NEOPLASM [None]
  - PCO2 ABNORMAL [None]
  - PERIRECTAL ABSCESS [None]
  - PROTEIN TOTAL ABNORMAL [None]
  - RED BLOOD CELL COUNT DECREASED [None]
  - WHITE BLOOD CELL COUNT DECREASED [None]
